FAERS Safety Report 9235428 (Version 1)
Quarter: 2013Q2

REPORT INFORMATION
  Report Type: Spontaneous
  Country: US (occurrence: US)
  Receive Date: 20130417
  Receipt Date: 20130417
  Transmission Date: 20140414
  Serious: No
  Sender: FDA-Public Use
  Company Number: US-009507513-1304USA006284

PATIENT
  Sex: Male

DRUGS (2)
  1. PEGINTRON [Suspect]
     Indication: HEPATITIS C
     Dosage: 0.5 ML, QW
     Route: 058
     Dates: start: 201301
  2. REBETOL [Suspect]

REACTIONS (3)
  - Feeling abnormal [Not Recovered/Not Resolved]
  - Rash generalised [Not Recovered/Not Resolved]
  - Product quality issue [Unknown]
